FAERS Safety Report 9404482 (Version 1)
Quarter: 2013Q3

REPORT INFORMATION
  Report Type: Spontaneous
  Country: US (occurrence: US)
  Receive Date: 20130717
  Receipt Date: 20130717
  Transmission Date: 20140515
  Serious: No
  Sender: FDA-Public Use
  Company Number: US-PFIZER INC-2013206590

PATIENT
  Age: 68 Year
  Sex: Male

DRUGS (1)
  1. VFEND [Suspect]
     Dosage: 300 UNK, 2X/DAY
     Dates: start: 20130507, end: 20130712

REACTIONS (1)
  - Hepatic enzyme increased [Unknown]
